FAERS Safety Report 7639732-0 (Version None)
Quarter: 2011Q3

REPORT INFORMATION
  Report Type: 
  Country: None (occurrence: None)
  Receive Date: 20110727
  Receipt Date: 20110714
  Transmission Date: 20111222
  Serious: Yes (Other)
  Sender: FDA-Public Use
  Company Number: US-CELGENEUS-163-21880-11071705

PATIENT
  Sex: Male
  Weight: 63.56 kg

DRUGS (8)
  1. OXYCONTIN [Concomitant]
     Dosage: 10 MILLIGRAM
     Route: 065
  2. ZOLPIDEM [Concomitant]
     Dosage: 5 MILLIGRAM
     Route: 065
  3. ATRIPLA [Concomitant]
     Route: 065
  4. CALCIUM WITH D [Concomitant]
     Route: 065
  5. REVLIMID [Suspect]
     Indication: MULTIPLE MYELOMA
     Dosage: 15 MILLIGRAM
     Route: 048
     Dates: start: 20081101
  6. NEURONTIN [Concomitant]
     Dosage: 100 MILLIGRAM
     Route: 065
  7. SIMVASTATIN [Concomitant]
     Dosage: 40 MILLIGRAM
     Route: 065
  8. OXYCODONE HCL AND ACETAMINOPHEN [Concomitant]
     Dosage: 10-325MG
     Route: 065

REACTIONS (2)
  - HAEMORRHAGE [None]
  - CONTUSION [None]
